APPROVED DRUG PRODUCT: LEUPROLIDE ACETATE
Active Ingredient: LEUPROLIDE ACETATE
Strength: 14MG/2.8ML (1MG/0.2ML)
Dosage Form/Route: SOLUTION;SUBCUTANEOUS
Application: A217437 | Product #001
Applicant: PH HEALTH LTD
Approved: Jun 9, 2025 | RLD: No | RS: No | Type: DISCN